FAERS Safety Report 23006233 (Version 3)
Quarter: 2023Q4

REPORT INFORMATION
  Report Type: Spontaneous
  Country: US (occurrence: US)
  Receive Date: 20230929
  Receipt Date: 20231010
  Transmission Date: 20240110
  Serious: No
  Sender: FDA-Public Use
  Company Number: US-AMGEN-USASP2023172274

PATIENT
  Age: 78 Year
  Sex: Female

DRUGS (3)
  1. TAVNEOS [Suspect]
     Active Substance: AVACOPAN
     Indication: Granulomatosis with polyangiitis
     Dosage: 30 MILLIGRAM, BID (3 CAP BID)
     Route: 048
     Dates: start: 20230921, end: 20230922
  2. TAVNEOS [Suspect]
     Active Substance: AVACOPAN
     Dosage: 60 MILLIGRAM, QD
     Route: 048
     Dates: start: 20230923
  3. TAVNEOS [Suspect]
     Active Substance: AVACOPAN
     Dosage: 30 MILLIGRAM, BID ((MORNING DOSE)
     Route: 048
     Dates: start: 20230924, end: 20230924

REACTIONS (4)
  - Mouth swelling [Unknown]
  - Lip swelling [Recovered/Resolved]
  - Swollen tongue [Unknown]
  - Swelling face [Unknown]

NARRATIVE: CASE EVENT DATE: 20230924
